FAERS Safety Report 21608806 (Version 6)
Quarter: 2023Q1

REPORT INFORMATION
  Report Type: Spontaneous
  Country: US (occurrence: US)
  Receive Date: 20221117
  Receipt Date: 20230216
  Transmission Date: 20230418
  Serious: No
  Sender: FDA-Public Use
  Company Number: US-PFIZER INC-202201307651

PATIENT
  Age: 74 Year
  Sex: Female
  Weight: 90.703 kg

DRUGS (1)
  1. PAXLOVID [Suspect]
     Active Substance: NIRMATRELVIR\RITONAVIR
     Indication: COVID-19 treatment
     Dosage: 10 MG, 2X/DAY
     Dates: start: 20221114, end: 20221118

REACTIONS (8)
  - Disease recurrence [Recovered/Resolved]
  - COVID-19 [Recovered/Resolved]
  - Diarrhoea [Unknown]
  - Dysgeusia [Recovered/Resolved]
  - Malaise [Unknown]
  - Sinus disorder [Unknown]
  - Incorrect dose administered [Recovered/Resolved]
  - Product prescribing error [Recovered/Resolved]

NARRATIVE: CASE EVENT DATE: 20221101
